FAERS Safety Report 10039364 (Version 1)
Quarter: 2014Q1

REPORT INFORMATION
  Report Type: Spontaneous
  Country: JP (occurrence: JP)
  Receive Date: 20140326
  Receipt Date: 20140326
  Transmission Date: 20141002
  Serious: Yes (Other)
  Sender: FDA-Public Use
  Company Number: PHHY2014JP035485

PATIENT
  Age: 65 Year
  Sex: Male

DRUGS (1)
  1. NEORAL [Suspect]
     Indication: APLASTIC ANAEMIA
     Dosage: 250 MG (TWO DIVIDED DOSES)
     Route: 048

REACTIONS (8)
  - Paralysis [Unknown]
  - Hypoaesthesia [Unknown]
  - Erythema [Unknown]
  - Pain in extremity [Unknown]
  - General physical health deterioration [Unknown]
  - Blood count abnormal [Recovered/Resolved]
  - Oedema [Unknown]
  - Influenza [Recovered/Resolved]
